FAERS Safety Report 7323254-0 (Version None)
Quarter: 2011Q1

REPORT INFORMATION
  Report Type: 
  Country: None (occurrence: None)
  Receive Date: 20110217
  Receipt Date: 20110110
  Transmission Date: 20110831
  Serious: Yes (Other)
  Sender: FDA-Public Use
  Company Number: 2010EN000313

PATIENT
  Age: 67 Year
  Sex: Female

DRUGS (1)
  1. ABELCET [Suspect]
     Indication: PRODUCT USED FOR UNKNOWN INDICATION
     Dosage: IV
     Route: 042
     Dates: start: 20090401

REACTIONS (2)
  - TACHYCARDIA [None]
  - HYPERTENSION [None]
